FAERS Safety Report 12084024 (Version 4)
Quarter: 2016Q4

REPORT INFORMATION
  Report Type: Spontaneous
  Country: FR (occurrence: FR)
  Receive Date: 20160217
  Receipt Date: 20161004
  Transmission Date: 20170206
  Serious: Yes (Hospitalization)
  Sender: FDA-Public Use
  Company Number: FR-PFIZER INC-2016083337

PATIENT
  Age: 44 Year
  Sex: Female

DRUGS (8)
  1. STILNOX [Suspect]
     Active Substance: ZOLPIDEM TARTRATE
     Dosage: UNK
  2. LOXAPAC /00401801/ [Suspect]
     Active Substance: LOXAPINE SUCCINATE
     Dosage: UNK
  3. ATARAX [Suspect]
     Active Substance: HYDROXYZINE\HYDROXYZINE HYDROCHLORIDE
     Dosage: UNK
     Dates: start: 2013
  4. NOCTAMIDE [Suspect]
     Active Substance: LORMETAZEPAM
     Dosage: UNK
  5. VALDOXAN [Suspect]
     Active Substance: AGOMELATINE
     Dosage: UNK
     Route: 048
     Dates: start: 2013
  6. XEROQUEL [Suspect]
     Active Substance: QUETIAPINE FUMARATE
     Dosage: UNK
     Dates: start: 2013
  7. EFFEXOR [Suspect]
     Active Substance: VENLAFAXINE HYDROCHLORIDE
     Dosage: UNK
     Dates: start: 2013
  8. VALIUM [Suspect]
     Active Substance: DIAZEPAM
     Dosage: UNK
     Dates: start: 2013

REACTIONS (7)
  - Gamma-glutamyltransferase increased [Recovered/Resolved with Sequelae]
  - Cholestatic liver injury [Recovered/Resolved with Sequelae]
  - Calculus bladder [Unknown]
  - Abdominal pain upper [Unknown]
  - Flatulence [Unknown]
  - Nausea [Recovered/Resolved with Sequelae]
  - Hepatic steatosis [Unknown]

NARRATIVE: CASE EVENT DATE: 201510
